FAERS Safety Report 11715190 (Version 2)
Quarter: 2015Q4

REPORT INFORMATION
  Report Type: Spontaneous
  Country: CH (occurrence: CH)
  Receive Date: 20151109
  Receipt Date: 20151123
  Transmission Date: 20160304
  Serious: Yes (Hospitalization)
  Sender: FDA-Public Use
  Company Number: CH-TEVA-605594ISR

PATIENT
  Age: 80 Year
  Sex: Female
  Weight: 62 kg

DRUGS (5)
  1. FORTECORTIN 4 MG TABLETTEN [Suspect]
     Active Substance: DEXAMETHASONE
     Dosage: 8 MILLIGRAM DAILY; STRENGTH 4 MG
     Route: 048
     Dates: start: 20150802, end: 20150805
  2. MYDOCALM [Concomitant]
     Active Substance: TOLPERISONE
     Dosage: 150 MILLIGRAM DAILY; STRENGTH 150 MG
     Route: 048
  3. TRAMADOL-MEPHA TROPFEN [Suspect]
     Active Substance: TRAMADOL
     Dosage: 10 GTT DAILY; STRENGTH 100 MG
     Route: 048
     Dates: start: 20150802, end: 20150805
  4. PANTOZOL [Concomitant]
     Active Substance: PANTOPRAZOLE SODIUM
     Dosage: 20 MILLIGRAM DAILY; STRENGTH 20 MGM; CONTINUING
     Route: 048
  5. TILUR [Concomitant]
     Active Substance: ACEMETACIN
     Dosage: 90 MILLIGRAM DAILY; STRENGTH 90 MG
     Route: 048

REACTIONS (3)
  - Constipation [Recovered/Resolved]
  - Abdominal pain [Recovered/Resolved]
  - Faecaloma [Recovered/Resolved]

NARRATIVE: CASE EVENT DATE: 20150802
